FAERS Safety Report 7505478-2 (Version None)
Quarter: 2011Q2

REPORT INFORMATION
  Report Type: 
  Country: None (occurrence: None)
  Receive Date: 20110526
  Receipt Date: 20110516
  Transmission Date: 20111010
  Serious: Yes (Hospitalization)
  Sender: FDA-Public Use
  Company Number: US-AMGEN-USASP2011025152

PATIENT
  Age: 50 Year
  Sex: Male

DRUGS (3)
  1. TREXALL [Concomitant]
     Dosage: 8 MG, QWK
     Dates: start: 20101201
  2. PLAQUENIL [Concomitant]
     Dosage: UNK UNK, BID
     Dates: start: 20110101
  3. ENBREL [Suspect]
     Indication: RHEUMATOID ARTHRITIS
     Dates: start: 20090701, end: 20100901

REACTIONS (4)
  - COMA [None]
  - WEST NILE VIRAL INFECTION [None]
  - MUSCULOSKELETAL PAIN [None]
  - ARTHRALGIA [None]
